FAERS Safety Report 16544673 (Version 1)
Quarter: 2019Q3

REPORT INFORMATION
  Report Type: Spontaneous
  Country: US (occurrence: US)
  Receive Date: 20190528
  Receipt Date: 20190528
  Transmission Date: 20191004
  Serious: Yes (Hospitalization)
  Sender: FDA-Public Use
  Company Number: None

PATIENT
  Age: 60 Year
  Sex: Female

DRUGS (19)
  1. ELIQUIS [Concomitant]
     Active Substance: APIXABAN
  2. SERTRALINE [Concomitant]
     Active Substance: SERTRALINE HYDROCHLORIDE
  3. SILDENAFIL 20MG [Suspect]
     Active Substance: SILDENAFIL
     Indication: LUNG DISORDER
     Route: 048
     Dates: start: 20190109
  4. ENALAPRIL [Concomitant]
     Active Substance: ENALAPRIL
  5. AMIODARONE [Concomitant]
     Active Substance: AMIODARONE
  6. CARVEDILOL. [Concomitant]
     Active Substance: CARVEDILOL
  7. METFORMIN [Concomitant]
     Active Substance: METFORMIN HYDROCHLORIDE
  8. RANTINIDINE [Concomitant]
  9. IRPRATROPIUM [Concomitant]
  10. PREDNISONE. [Concomitant]
     Active Substance: PREDNISONE
  11. ROSUVASTATIN. [Concomitant]
     Active Substance: ROSUVASTATIN
  12. MONTELUKAST [Concomitant]
     Active Substance: MONTELUKAST SODIUM
  13. TOBRA/DEXAME [Concomitant]
  14. MUPIROCIN. [Concomitant]
     Active Substance: MUPIROCIN
  15. NYSTATIN. [Concomitant]
     Active Substance: NYSTATIN
  16. DALIRESP [Concomitant]
     Active Substance: ROFLUMILAST
  17. NOVOLOG [Concomitant]
     Active Substance: INSULIN ASPART
  18. CEPHALEXIN. [Concomitant]
     Active Substance: CEPHALEXIN
  19. PIOGLITAZONE. [Concomitant]
     Active Substance: PIOGLITAZONE

REACTIONS (2)
  - Viral infection [None]
  - Localised infection [None]

NARRATIVE: CASE EVENT DATE: 201904
